FAERS Safety Report 5129712-1 (Version None)
Quarter: 2006Q4

REPORT INFORMATION
  Report Type: 
  Country: None (occurrence: None)
  Receive Date: 20061018
  Receipt Date: 20060918
  Transmission Date: 20070319
  Serious: Yes (Death)
  Sender: FDA-Public Use
  Company Number: DE-GLAXOSMITHKLINE-D0050919A

PATIENT
  Age: 53 Year
  Sex: Female
  Weight: 160 kg

DRUGS (15)
  1. ALKERAN [Suspect]
     Indication: PARAPROTEINAEMIA
     Dosage: 26.03MG PER DAY
     Route: 042
     Dates: start: 20060719
  2. AREDIA [Concomitant]
     Dosage: 60MG PER DAY
     Route: 042
  3. CARVEDILOL [Concomitant]
     Route: 065
  4. DELMUNO [Concomitant]
     Route: 065
  5. ALLOPURINOL [Concomitant]
     Dosage: 150MG PER DAY
     Route: 065
  6. THYRONAJOD [Concomitant]
     Dosage: 75MCG PER DAY
     Route: 065
  7. ASPIRIN [Concomitant]
     Dosage: 100MG PER DAY
     Route: 065
  8. SIMVASTATIN [Concomitant]
     Dosage: 30MG PER DAY
     Route: 065
  9. GLUCOPHAGE [Concomitant]
     Dosage: 1000MG PER DAY
     Route: 065
  10. MOXONIDIN [Concomitant]
     Route: 065
  11. AMARYL [Concomitant]
     Dosage: 3MG PER DAY
     Route: 065
  12. ACTRAPID [Concomitant]
     Route: 065
  13. LANTUS [Concomitant]
     Route: 065
  14. TRAMADOL HCL [Concomitant]
     Route: 065
  15. PREDNISOLONE [Concomitant]
     Dosage: 100MG PER DAY
     Route: 065

REACTIONS (3)
  - CARDIAC ARREST [None]
  - NAUSEA [None]
  - RESPIRATORY ARREST [None]
